FAERS Safety Report 15864164 (Version 1)
Quarter: 2019Q1

REPORT INFORMATION
  Report Type: Spontaneous
  Country: US (occurrence: US)
  Receive Date: 20190110
  Receipt Date: 20190110
  Transmission Date: 20190417
  Serious: No
  Sender: FDA-Public Use
  Company Number: None

PATIENT
  Age: 49 Year
  Sex: Male

DRUGS (1)
  1. MAVYRET [Suspect]
     Active Substance: GLECAPREVIR\PIBRENTASVIR
     Indication: HEPATITIS C
     Dates: start: 20181212

REACTIONS (7)
  - Fatigue [None]
  - Asthenia [None]
  - Hyperhidrosis [None]
  - Pruritus [None]
  - Dry skin [None]
  - Dry mouth [None]
  - Headache [None]

NARRATIVE: CASE EVENT DATE: 20181212
